FAERS Safety Report 4577942-X (Version None)
Quarter: 2005Q1

REPORT INFORMATION
  Report Type: 
  Country: None (occurrence: None)
  Receive Date: 20050211
  Receipt Date: 20041102
  Transmission Date: 20050727
  Serious: Yes (Other)
  Sender: FDA-Public Use
  Company Number: PHNU2004DE03730

PATIENT
  Sex: Male

DRUGS (4)
  1. KARVEA [Concomitant]
     Dosage: 150 MG/D
     Dates: start: 20040101
  2. JODETTEN ^HENNING^ [Concomitant]
  3. MULTIVITAMIN [Concomitant]
  4. LOPRESSOR [Suspect]
     Indication: HYPERTENSION
     Dosage: 1 DF, QD
     Route: 048
     Dates: start: 20000101

REACTIONS (2)
  - GAMMA-GLUTAMYLTRANSFERASE INCREASED [None]
  - INTESTINAL OPERATION [None]
